FAERS Safety Report 19798843 (Version 1)
Quarter: 2021Q3

REPORT INFORMATION
  Report Type: Spontaneous
  Country: US (occurrence: US)
  Receive Date: 20210907
  Receipt Date: 20210907
  Transmission Date: 20211014
  Serious: Yes (Hospitalization, Other)
  Sender: FDA-Public Use
  Company Number: US-ACCORD-237333

PATIENT
  Age: 54 Year
  Sex: Female

DRUGS (4)
  1. ATORVASTATIN/ATORVASTATIN CALCIUM [Suspect]
     Active Substance: ATORVASTATIN CALCIUM
     Indication: PRODUCT USED FOR UNKNOWN INDICATION
  2. DAPTOMYCIN. [Interacting]
     Active Substance: DAPTOMYCIN
     Indication: STAPHYLOCOCCAL INFECTION
     Dosage: 10 MG/KG OF IDEAL BODY WEIGHT (750 MG DAILY). A TUNNELED CATHETER WAS PLACED.
  3. LEFLUNOMIDE. [Interacting]
     Active Substance: LEFLUNOMIDE
     Indication: PSORIATIC ARTHROPATHY
  4. SULFAMETHOXAZOLE/TRIMETHOPRIM [Concomitant]
     Active Substance: SULFAMETHOXAZOLE\TRIMETHOPRIM
     Indication: SOFT TISSUE INFECTION
     Route: 048

REACTIONS (2)
  - Rhabdomyolysis [Recovering/Resolving]
  - Drug interaction [Unknown]
